FAERS Safety Report 10247014 (Version 1)
Quarter: 2014Q2

REPORT INFORMATION
  Report Type: Spontaneous
  Country: US (occurrence: None)
  Receive Date: 20140617
  Receipt Date: 20140617
  Transmission Date: 20141212
  Serious: No
  Sender: FDA-Public Use
  Company Number: None

PATIENT
  Age: 64 Year
  Sex: Female

DRUGS (1)
  1. HUMIRA [Suspect]
     Indication: COLITIS ULCERATIVE
     Dosage: 40 MG Q14 DAYS SQ
     Route: 058
     Dates: start: 20140325

REACTIONS (1)
  - Clostridium difficile infection [None]
